FAERS Safety Report 8436019-3 (Version None)
Quarter: 2012Q2

REPORT INFORMATION
  Report Type: 
  Country: None (occurrence: None)
  Receive Date: 20120614
  Receipt Date: 20120607
  Transmission Date: 20120825
  Serious: Yes (Death, Hospitalization)
  Sender: FDA-Public Use
  Company Number: ES-ROCHE-1076524

PATIENT
  Age: 33 Year
  Sex: Female
  Weight: 60 kg

DRUGS (7)
  1. BEVACIZUMAB [Suspect]
     Indication: BREAST CANCER METASTATIC
     Route: 042
     Dates: start: 20120216, end: 20120301
  2. PACLITAXEL [Suspect]
     Indication: BREAST CANCER METASTATIC
     Route: 042
     Dates: start: 20120216, end: 20120315
  3. CAPOTEN [Concomitant]
     Indication: HYPERTENSION
     Route: 048
     Dates: start: 20120313, end: 20120320
  4. ZOLEDRONIC ACID [Suspect]
     Indication: BREAST CANCER METASTATIC
     Route: 042
     Dates: start: 20120216, end: 20120315
  5. CODEINE SUL TAB [Concomitant]
     Indication: PAIN
     Route: 048
     Dates: start: 20120216, end: 20120320
  6. ACETAMINOPHEN [Concomitant]
     Indication: PAIN
     Route: 048
     Dates: start: 20120216, end: 20120320
  7. NAPROXEN [Concomitant]
     Indication: PAIN
     Route: 048
     Dates: start: 20120216, end: 20120315

REACTIONS (5)
  - RENAL FAILURE [None]
  - HYPERTENSION [None]
  - CARDIO-RESPIRATORY ARREST [None]
  - ENCEPHALOPATHY [None]
  - VENOUS THROMBOSIS [None]
